FAERS Safety Report 9660142 (Version 1)
Quarter: 2013Q4

REPORT INFORMATION
  Report Type: Spontaneous
  Country: US (occurrence: US)
  Receive Date: 20131031
  Receipt Date: 20131031
  Transmission Date: 20140711
  Serious: No
  Sender: FDA-Public Use
  Company Number: US-ABBVIE-13P-163-1043121-00

PATIENT
  Sex: Female

DRUGS (20)
  1. BIAXIN [Suspect]
     Indication: PRODUCT USED FOR UNKNOWN INDICATION
  2. PROGRAF [Concomitant]
     Indication: IMMUNE SYSTEM DISORDER
     Dosage: 5 MG IN AM AND PM
  3. MYFORTIC [Concomitant]
     Indication: IMMUNE SYSTEM DISORDER
  4. PREDNISONE [Concomitant]
     Indication: IMMUNE SYSTEM DISORDER
  5. SEROQUEL XR [Concomitant]
     Indication: ANXIETY
  6. CLONAZEPAM [Concomitant]
     Indication: ANXIETY
  7. LOVASTATIN [Concomitant]
     Indication: BLOOD CHOLESTEROL
  8. LEVOTHYROXINE [Concomitant]
     Indication: THYROID DISORDER
  9. LYRICA [Concomitant]
     Indication: NERVOUS SYSTEM DISORDER
  10. OMEPRAZOLE [Concomitant]
     Indication: GASTRIC DISORDER
  11. CLONIDINE [Concomitant]
     Indication: BLOOD PRESSURE
  12. AMLODIPINE BESILATE [Concomitant]
     Indication: BLOOD PRESSURE
  13. FUROSEMIDE [Concomitant]
     Indication: DIURETIC THERAPY
  14. MORPHINE [Concomitant]
     Indication: PAIN
  15. VITAMIN B12 [Concomitant]
     Indication: PRODUCT USED FOR UNKNOWN INDICATION
  16. VITAMIN D3 [Concomitant]
     Indication: PRODUCT USED FOR UNKNOWN INDICATION
  17. MAG OXIDE [Concomitant]
     Indication: PRODUCT USED FOR UNKNOWN INDICATION
  18. OSCAL D [Concomitant]
     Indication: PRODUCT USED FOR UNKNOWN INDICATION
  19. POTASSIUM CHLORIDE [Concomitant]
  20. STOOL SOFTENER [Concomitant]

REACTIONS (1)
  - Hypersensitivity [Unknown]
